FAERS Safety Report 9468536 (Version 1)
Quarter: 2013Q3

REPORT INFORMATION
  Report Type: Spontaneous
  Country: US (occurrence: US)
  Receive Date: 20130821
  Receipt Date: 20130821
  Transmission Date: 20140515
  Serious: No
  Sender: FDA-Public Use
  Company Number: US-BAYER-2013-097884

PATIENT
  Sex: Female

DRUGS (2)
  1. BETASERON [Suspect]
     Dosage: 0.25 MG, UNK
  2. AMPYRA [Suspect]
     Dosage: 10 MG, UNK
     Route: 065

REACTIONS (2)
  - Injection site ulcer [None]
  - Injection site mass [None]
